FAERS Safety Report 20736979 (Version 2)
Quarter: 2022Q3

REPORT INFORMATION
  Report Type: Spontaneous
  Country: CA (occurrence: CA)
  Receive Date: 20220421
  Receipt Date: 20220901
  Transmission Date: 20221027
  Serious: Yes (Other)
  Sender: FDA-Public Use
  Company Number: CA-VERTEX PHARMACEUTICALS-2022-005793

PATIENT

DRUGS (1)
  1. TRIKAFTA [Suspect]
     Active Substance: ELEXACAFTOR\IVACAFTOR\TEZACAFTOR
     Indication: Cystic fibrosis
     Dosage: UNK FREQUENCY
     Route: 048

REACTIONS (1)
  - Hepatic failure [Unknown]
